FAERS Safety Report 6972362-2 (Version None)
Quarter: 2010Q3

REPORT INFORMATION
  Report Type: 
  Country: None (occurrence: None)
  Receive Date: 20100909
  Receipt Date: 20100901
  Transmission Date: 20110219
  Serious: Yes (Disabling)
  Sender: FDA-Public Use
  Company Number: FR-JNJFOC-20100901387

PATIENT
  Age: 35 Year
  Sex: Male

DRUGS (2)
  1. HALDOL DECANOAS [Suspect]
     Indication: PSYCHOTIC DISORDER
     Route: 030
  2. HALDOL DECANOAS [Suspect]
     Route: 030

REACTIONS (2)
  - NODULE [None]
  - OFF LABEL USE [None]
